FAERS Safety Report 7392364-4 (Version None)
Quarter: 2011Q2

REPORT INFORMATION
  Report Type: 
  Country: None (occurrence: None)
  Receive Date: 20110404
  Receipt Date: 20110323
  Transmission Date: 20111010
  Serious: Yes (Hospitalization, Other)
  Sender: FDA-Public Use
  Company Number: BR-SANOFI-AVENTIS-2011SA018198

PATIENT
  Age: 52 Year
  Sex: Female
  Weight: 92 kg

DRUGS (6)
  1. SOLOSTAR [Suspect]
  2. LANTUS [Suspect]
     Indication: TYPE 1 DIABETES MELLITUS
     Route: 058
  3. OPTIPEN [Suspect]
  4. CENTRUM [Concomitant]
     Route: 048
  5. APIDRA SOLOSTAR [Suspect]
     Indication: TYPE 1 DIABETES MELLITUS
     Route: 058
     Dates: start: 20100101
  6. DICETEL [Concomitant]
     Indication: DYSENTERY

REACTIONS (1)
  - RENAL IMPAIRMENT [None]
